FAERS Safety Report 8254098-3 (Version None)
Quarter: 2012Q2

REPORT INFORMATION
  Report Type: 
  Country: None (occurrence: None)
  Receive Date: 20120402
  Receipt Date: 20120320
  Transmission Date: 20120825
  Serious: No
  Sender: FDA-Public Use
  Company Number: US-AMGEN-USASP2012017963

PATIENT
  Age: 66 Year
  Sex: Female

DRUGS (2)
  1. ENBREL [Suspect]
     Indication: PSORIATIC ARTHROPATHY
     Dosage: 50 MG, 2 TIMES/WK
     Dates: start: 20120308
  2. ENBREL [Suspect]
     Indication: PSORIASIS

REACTIONS (4)
  - INJECTION SITE PAIN [None]
  - ARTHRALGIA [None]
  - INSOMNIA [None]
  - FATIGUE [None]
